FAERS Safety Report 4436717-2 (Version None)
Quarter: 2004Q3

REPORT INFORMATION
  Report Type: 
  Country: None (occurrence: None)
  Receive Date: 20040728
  Receipt Date: 20030926
  Transmission Date: 20050211
  Serious: No
  Sender: FDA-Public Use
  Company Number: 202627

PATIENT
  Age: 59 Year
  Sex: Female
  Weight: 73 kg

DRUGS (2)
  1. RITUXAN [Suspect]
     Indication: NON-HODGKIN'S LYMPHOMA
     Dosage: 700 MG , 1/WEEK, INTRAVENOUS; INTRAVENOUS
     Route: 042
     Dates: start: 20030815
  2. ANTIBIOTICS NOS (ANTIBIOTICS NOS) [Concomitant]

REACTIONS (1)
  - NEUTROPENIA [None]
